FAERS Safety Report 18436373 (Version 2)
Quarter: 2020Q4

REPORT INFORMATION
  Report Type: Spontaneous
  Country: CA (occurrence: CA)
  Receive Date: 20201028
  Receipt Date: 20201110
  Transmission Date: 20210114
  Serious: Yes (Other)
  Sender: FDA-Public Use
  Company Number: CA-PFIZER INC-2018157009

PATIENT
  Age: 32 Year
  Sex: Female
  Weight: 110 kg

DRUGS (7)
  1. GENOTROPIN GOQUICK [Suspect]
     Active Substance: SOMATROPIN
     Dosage: 0.9 MG, DAILY
     Route: 058
     Dates: start: 2020
  2. METHADONE [Concomitant]
     Active Substance: METHADONE HYDROCHLORIDE
     Dosage: 35 MG, 3X/DAY
     Route: 048
     Dates: start: 20131029
  3. GENOTROPIN GOQUICK [Suspect]
     Active Substance: SOMATROPIN
     Dosage: 1 MG, DAILY
     Route: 058
     Dates: end: 2020
  4. GENOTROPIN GOQUICK [Suspect]
     Active Substance: SOMATROPIN
     Dosage: 1 MG, UNK
     Route: 058
  5. GENOTROPIN GOQUICK [Suspect]
     Active Substance: SOMATROPIN
     Indication: GROWTH HORMONE DEFICIENCY
     Dosage: 1.05 MG, UNK
     Route: 058
     Dates: start: 20180215, end: 2018
  6. GENOTROPIN GOQUICK [Suspect]
     Active Substance: SOMATROPIN
     Dosage: 0.9 MG, UNK
     Route: 058
  7. SYNTHROID [Concomitant]
     Active Substance: LEVOTHYROXINE SODIUM
     Indication: HYPOTHYROIDISM
     Dosage: 0.1 MG, DAILY
     Route: 048
     Dates: start: 2011

REACTIONS (8)
  - Product prescribing error [Unknown]
  - Energy increased [Unknown]
  - Incorrect dose administered [Unknown]
  - COVID-19 [Recovered/Resolved]
  - Weight decreased [Unknown]
  - Therapeutic response unexpected [Unknown]
  - Product dose omission issue [Unknown]
  - Menstruation normal [Unknown]

NARRATIVE: CASE EVENT DATE: 20180130
